FAERS Safety Report 19362935 (Version 2)
Quarter: 2021Q2

REPORT INFORMATION
  Report Type: Report from Study
  Country: US (occurrence: US)
  Receive Date: 20210602
  Receipt Date: 20210611
  Transmission Date: 20210717
  Serious: Yes (Hospitalization)
  Sender: FDA-Public Use
  Company Number: US-JNJFOC-20210557424

PATIENT
  Age: 39 Year
  Sex: Female

DRUGS (2)
  1. OXYGEN. [Concomitant]
     Active Substance: OXYGEN
  2. EPOPROSTENOL SODIUM. [Suspect]
     Active Substance: EPOPROSTENOL SODIUM
     Indication: PULMONARY ARTERIAL HYPERTENSION
     Route: 042
     Dates: start: 20200118

REACTIONS (3)
  - Loss of consciousness [Unknown]
  - Vascular device infection [Not Recovered/Not Resolved]
  - Pulmonary vascular disorder [Not Recovered/Not Resolved]

NARRATIVE: CASE EVENT DATE: 202105
